FAERS Safety Report 4846929-1 (Version None)
Quarter: 2005Q4

REPORT INFORMATION
  Report Type: 
  Country: None (occurrence: None)
  Receive Date: 20051202
  Receipt Date: 20051123
  Transmission Date: 20060501
  Serious: Yes (Death, Hospitalization)
  Sender: FDA-Public Use
  Company Number: HQWYE620808MAR04

PATIENT
  Age: 49 Year
  Sex: Male

DRUGS (12)
  1. ROFERON, CONTROL FOR CCI-779 (INTERFERON ALFA, CONTROL FOR CCI-779, IN [Suspect]
     Indication: RENAL CELL CARCINOMA STAGE UNSPECIFIED
     Dosage: SEE IMAGE
     Route: 058
     Dates: start: 20040130, end: 20040201
  2. ROFERON, CONTROL FOR CCI-779 (INTERFERON ALFA, CONTROL FOR CCI-779, IN [Suspect]
     Indication: RENAL CELL CARCINOMA STAGE UNSPECIFIED
     Dosage: SEE IMAGE
     Route: 058
     Dates: start: 20040201, end: 20040207
  3. BUFORMIN (BUFORMIN) [Concomitant]
  4. GLICLAZIDE (GLICLAZIDE) [Concomitant]
  5. PINDOLOL [Concomitant]
  6. CLOPAMIDE (CLOPAMIDE) [Concomitant]
  7. PRAZOSIN GITS [Concomitant]
  8. AMILORIDE (AMILORIDE) [Concomitant]
  9. HYDROCHLOROTHIAZIDE [Concomitant]
  10. PENTOXIFYLLINE [Concomitant]
  11. DICLOFENAC (DICLOFENAC) [Concomitant]
  12. RANITIDINE [Concomitant]

REACTIONS (5)
  - CARDIOPULMONARY FAILURE [None]
  - DISEASE PROGRESSION [None]
  - GENERAL PHYSICAL HEALTH DETERIORATION [None]
  - NAUSEA [None]
  - PYREXIA [None]
